FAERS Safety Report 7384167-1 (Version None)
Quarter: 2011Q1

REPORT INFORMATION
  Report Type: 
  Country: None (occurrence: None)
  Receive Date: 20110330
  Receipt Date: 20110323
  Transmission Date: 20110831
  Serious: Yes (Hospitalization)
  Sender: FDA-Public Use
  Company Number: B0708299A

PATIENT
  Age: 67 Year
  Sex: Male
  Weight: 60 kg

DRUGS (11)
  1. PROTECADIN [Concomitant]
     Dosage: 20MG PER DAY
     Route: 048
     Dates: start: 20060913
  2. MAGMITT [Concomitant]
     Dosage: 1980MG PER DAY
     Route: 048
     Dates: start: 20060913
  3. AMOBAN [Concomitant]
     Dosage: 7.5MG PER DAY
     Route: 048
     Dates: start: 20060913
  4. EVIPROSTAT [Concomitant]
     Dosage: 6IUAX PER DAY
     Route: 048
     Dates: start: 20070122
  5. ALKERAN [Suspect]
     Indication: STEM CELL TRANSPLANT
     Dosage: 100MGM2 PER DAY
     Route: 042
     Dates: start: 20070213, end: 20070214
  6. ZOVIRAX [Concomitant]
     Dosage: 2.5G PER DAY
     Route: 048
     Dates: start: 20070208, end: 20070226
  7. HARNAL D [Concomitant]
     Dosage: .3MG PER DAY
     Route: 048
     Dates: start: 20070122
  8. SEROQUEL [Concomitant]
     Dosage: 100MG PER DAY
     Route: 048
     Dates: start: 20060913
  9. SEROTONE [Concomitant]
     Dosage: 10MG PER DAY
     Route: 042
     Dates: start: 20070213, end: 20070214
  10. MYONAL [Concomitant]
     Dosage: 150MG PER DAY
     Route: 048
     Dates: start: 20060913
  11. UBRETID [Concomitant]
     Dosage: 5MG PER DAY
     Route: 048
     Dates: start: 20070122

REACTIONS (2)
  - MUSCLE SPASMS [None]
  - HERPES ZOSTER [None]
